FAERS Safety Report 9642437 (Version 1)
Quarter: 2013Q4

REPORT INFORMATION
  Report Type: Report from Study
  Country: CA (occurrence: CA)
  Receive Date: 20131024
  Receipt Date: 20131024
  Transmission Date: 20140711
  Serious: Yes (Hospitalization)
  Sender: FDA-Public Use
  Company Number: CA-ROCHE-1292200

PATIENT
  Age: 61 Year
  Sex: Female

DRUGS (17)
  1. TRASTUZUMAB [Suspect]
     Indication: PRODUCT USED FOR UNKNOWN INDICATION
     Route: 042
  2. TRASTUZUMAB [Suspect]
     Route: 042
  3. TRASTUZUMAB [Suspect]
     Route: 042
  4. CARBOPLATIN [Suspect]
     Indication: PRODUCT USED FOR UNKNOWN INDICATION
     Route: 042
  5. CARBOPLATIN [Suspect]
     Route: 042
  6. DOCETAXEL [Suspect]
     Indication: PRODUCT USED FOR UNKNOWN INDICATION
     Route: 042
  7. DOCETAXEL [Suspect]
     Route: 042
  8. BUPROPION [Concomitant]
     Route: 065
  9. CYANOCOBALAMIN [Concomitant]
  10. DEXAMETHASONE [Concomitant]
  11. NEULASTA [Concomitant]
     Route: 058
  12. PERINDOPRIL [Concomitant]
  13. PULMICORT [Concomitant]
  14. SALBUTAMOL [Concomitant]
  15. TRAZODONE [Concomitant]
     Route: 065
  16. WELLBUTRIN [Concomitant]
     Route: 065
  17. ZOFRAN [Concomitant]

REACTIONS (5)
  - Asthenia [Unknown]
  - Dehydration [Recovered/Resolved]
  - Fatigue [Recovered/Resolved]
  - Hypophagia [Unknown]
  - Nausea [Unknown]
